FAERS Safety Report 6003833-3 (Version None)
Quarter: 2008Q4

REPORT INFORMATION
  Report Type: 
  Country: None (occurrence: None)
  Receive Date: 20081216
  Receipt Date: 20081212
  Transmission Date: 20090506
  Serious: No
  Sender: FDA-Public Use
  Company Number: US-BAYER-200837069NA

PATIENT
  Age: 38 Year
  Sex: Female
  Weight: 118 kg

DRUGS (1)
  1. YAZ [Suspect]
     Indication: PREMENSTRUAL SYNDROME
     Route: 048
     Dates: start: 20080915

REACTIONS (4)
  - DEPRESSION [None]
  - FEELING JITTERY [None]
  - NERVOUSNESS [None]
  - WEIGHT INCREASED [None]
